FAERS Safety Report 12011766 (Version 1)
Quarter: 2016Q1

REPORT INFORMATION
  Report Type: Spontaneous
  Country: CA (occurrence: CA)
  Receive Date: 20160205
  Receipt Date: 20160205
  Transmission Date: 20160526
  Serious: Yes (Life-Threatening)
  Sender: FDA-Public Use
  Company Number: CA-TEVA-632337ACC

PATIENT
  Age: 59 Year
  Sex: Female
  Weight: 79 kg

DRUGS (3)
  1. METHOTREXATE [Suspect]
     Active Substance: METHOTREXATE
     Indication: MYALGIA
     Route: 048
  2. LYRICA [Concomitant]
     Active Substance: PREGABALIN
  3. PREDNISONE. [Concomitant]
     Active Substance: PREDNISONE

REACTIONS (4)
  - Dyspnoea [Recovered/Resolved]
  - Chest X-ray abnormal [Recovered/Resolved]
  - Lung disorder [Recovered/Resolved]
  - Toxicity to various agents [Recovered/Resolved]
